FAERS Safety Report 4963571-2 (Version None)
Quarter: 2006Q1

REPORT INFORMATION
  Report Type: 
  Country: None (occurrence: None)
  Receive Date: 20060330
  Receipt Date: 20060313
  Transmission Date: 20060701
  Serious: Yes (Other)
  Sender: FDA-Public Use
  Company Number: 222987

PATIENT
  Age: 70 Year
  Sex: Male

DRUGS (10)
  1. AVASTIN [Suspect]
     Indication: COLON CANCER
     Dosage: 250 MG, Q2W, INTRAVENOUS
     Route: 042
     Dates: start: 20050817, end: 20060130
  2. OXALIPLATIN (OXALIPLATIN) [Suspect]
     Indication: COLON CANCER
     Dosage: 130 MG, Q2W, INTRAVENOUS
     Route: 042
     Dates: start: 20050817, end: 20051209
  3. OXALIPLATIN (OXALIPLATIN) [Suspect]
  4. FLUOROURACIL [Suspect]
     Indication: COLON CANCER
     Dosage: 1530 MG, Q2W, INTRAVENOUS
     Route: 042
     Dates: start: 20050817, end: 20051210
  5. LEUCOVORIN CALCIUM [Suspect]
     Indication: COLON CANCER
     Dosage: 306 MG, Q2W, INTRAVENOUS
     Route: 042
     Dates: start: 20050817, end: 20051210
  6. LEUCOVORIN CALCIUM [Suspect]
  7. DOMPERIDONE (DOMPERIDONE) [Concomitant]
  8. LORAZEPAM [Concomitant]
  9. TERAZOSIN (TERAZOSIN HYDROCHLORIDE) [Concomitant]
  10. CENTRUM (MINERALS NOS, MULTIVITAMINS NOS) [Concomitant]

REACTIONS (6)
  - CARDIAC DISORDER [None]
  - EJECTION FRACTION DECREASED [None]
  - MITRAL VALVE INCOMPETENCE [None]
  - PULMONARY HYPERTENSION [None]
  - TRICUSPID VALVE INCOMPETENCE [None]
  - VENTRICULAR EXTRASYSTOLES [None]
